FAERS Safety Report 25473158 (Version 1)
Quarter: 2025Q2

REPORT INFORMATION
  Report Type: Spontaneous
  Country: IT (occurrence: IT)
  Receive Date: 20250624
  Receipt Date: 20250624
  Transmission Date: 20250716
  Serious: Yes (Hospitalization, Other)
  Sender: Atnahs Healthcare
  Company Number: None

PATIENT
  Age: 64 Year
  Sex: Female

DRUGS (6)
  1. KETOROLAC [Suspect]
     Active Substance: KETOROLAC TROMETHAMINE
     Indication: Product used for unknown indication
     Route: 051
     Dates: start: 2021
  2. CEFDITOREN [Suspect]
     Active Substance: CEFDITOREN
     Indication: Antibiotic therapy
     Route: 065
     Dates: start: 2021
  3. CEFTRIAXONE [Suspect]
     Active Substance: CEFTRIAXONE
     Indication: Product used for unknown indication
     Route: 051
     Dates: start: 2021
  4. LEVOFLOXACIN [Suspect]
     Active Substance: LEVOFLOXACIN
     Indication: Escherichia infection
     Route: 065
     Dates: start: 2021
  5. RAMIPRIL/AMLODIPIN ABZ [Concomitant]
     Indication: Product used for unknown indication
     Route: 065
  6. RAMIPRIL/AMLODIPIN ABZ [Concomitant]
     Route: 065

REACTIONS (9)
  - Escherichia infection [Unknown]
  - Drug ineffective [Unknown]
  - Polymerase chain reaction positive [Unknown]
  - Hyperpyrexia [Unknown]
  - Hydronephrosis [Unknown]
  - Pyelonephritis [Unknown]
  - Cystocele [Unknown]
  - Vulvovaginal discomfort [Unknown]
  - Back pain [Unknown]

NARRATIVE: CASE EVENT DATE: 20210926
